FAERS Safety Report 9773146 (Version 1)
Quarter: 2013Q4

REPORT INFORMATION
  Report Type: Spontaneous
  Country: US (occurrence: None)
  Receive Date: 20131217
  Receipt Date: 20131217
  Transmission Date: 20140711
  Serious: Yes (Disabling)
  Sender: FDA-Public Use
  Company Number: 2062341

PATIENT
  Age: 72 Year
  Sex: Female
  Weight: 52.16 kg

DRUGS (1)
  1. VANCOMYCIN HYDROCHLORIDE FOR INJECTION USP (VANCOMYCIN HYDROCHLORIDE) [Suspect]
     Indication: PYREXIA

REACTIONS (11)
  - Fatigue [None]
  - Diarrhoea [None]
  - Movement disorder [None]
  - Arthralgia [None]
  - Arthralgia [None]
  - Pain [None]
  - Bronchitis [None]
  - Weight decreased [None]
  - Vasculitis [None]
  - Back pain [None]
  - Pollakiuria [None]
